FAERS Safety Report 12109367 (Version 1)
Quarter: 2016Q1

REPORT INFORMATION
  Report Type: Spontaneous
  Country: CA (occurrence: None)
  Receive Date: 20160223
  Receipt Date: 20160223
  Transmission Date: 20160526
  Serious: No
  Sender: FDA-Public Use
  Company Number: None

PATIENT
  Age: 53 Year
  Sex: Female
  Weight: 68.04 kg

DRUGS (2)
  1. CIPROFLOXACIN. [Suspect]
     Active Substance: CIPROFLOXACIN
     Indication: KIDNEY INFECTION
     Dosage: 1 PILL
     Route: 048
     Dates: start: 20160218, end: 20160219
  2. CIPROFLOXACIN. [Suspect]
     Active Substance: CIPROFLOXACIN
     Indication: CYSTITIS
     Dosage: 1 PILL
     Route: 048
     Dates: start: 20160218, end: 20160219

REACTIONS (3)
  - Paraesthesia [None]
  - Hypoaesthesia [None]
  - Hypoaesthesia oral [None]

NARRATIVE: CASE EVENT DATE: 20160219
